FAERS Safety Report 7786297-9 (Version None)
Quarter: 2011Q3

REPORT INFORMATION
  Report Type: 
  Country: None (occurrence: None)
  Receive Date: 20110929
  Receipt Date: 20110921
  Transmission Date: 20111222
  Serious: Yes (Hospitalization)
  Sender: FDA-Public Use
  Company Number: PHHY2011FR84667

PATIENT
  Sex: Male

DRUGS (10)
  1. ESOMEPRAZOLE SODIUM [Suspect]
     Indication: GASTRIC ULCER
     Dosage: 40 MG, QD
  2. BIPERIDYS [Concomitant]
     Dosage: UNK UKN, UNK
  3. TEGRETOL [Suspect]
     Indication: EPILEPSY
     Dosage: 400 MG, QD
  4. NOZINAN                                 /NET/ [Concomitant]
     Dosage: UNK UKN, UNK
  5. GAVISCON                                /GFR/ [Concomitant]
     Dosage: UNK UKN, UNK
  6. PIASCLEDINE                        /01305801/ [Concomitant]
     Dosage: UNK UKN, UNK
  7. EFFEXOR [Suspect]
     Indication: DEPRESSION
     Dosage: 150 MG, QD
     Dates: start: 20110901, end: 20110908
  8. FORLAX [Concomitant]
     Dosage: UNK UKN, UNK
  9. DEPAKENE [Suspect]
     Indication: EPILEPSY
     Dosage: 250 MG, BID
     Route: 048
  10. NEULEPTIL [Concomitant]
     Dosage: UNK UKN, UNK

REACTIONS (3)
  - HYPERAMMONAEMIA [None]
  - HYPONATRAEMIA [None]
  - DYSPNOEA [None]
